FAERS Safety Report 7208465-7 (Version None)
Quarter: 2010Q4

REPORT INFORMATION
  Report Type: 
  Country: None (occurrence: None)
  Receive Date: 20101222
  Receipt Date: 20101206
  Transmission Date: 20110411
  Serious: Yes (Other)
  Sender: FDA-Public Use
  Company Number: ALA_01176_2010

PATIENT
  Sex: Female
  Weight: 129.2752 kg

DRUGS (37)
  1. REGLAN [Suspect]
     Indication: DIABETIC GASTROPARESIS
     Dosage: (TABLET ORAL)
     Route: 048
     Dates: start: 20091204, end: 20100304
  2. REGLAN [Suspect]
     Indication: NAUSEA
     Dosage: (TABLET ORAL)
     Route: 048
     Dates: start: 20091204, end: 20100304
  3. WELLBUTRIN [Concomitant]
  4. BENADRYL [Concomitant]
  5. METHADONE HCL [Concomitant]
  6. PHENERGAN HCL [Concomitant]
  7. SEROQUEL [Concomitant]
  8. GEODON [Concomitant]
  9. XANAX [Concomitant]
  10. NOVOLOG [Concomitant]
  11. COUMADIN [Concomitant]
  12. LANTUS [Concomitant]
  13. SOMA [Concomitant]
  14. DILTIAZEM [Concomitant]
  15. SINGULAIR [Concomitant]
  16. BENICAR [Concomitant]
  17. METOPROLOL [Concomitant]
  18. LASIX [Concomitant]
  19. CRESTOR [Concomitant]
  20. POTASSIUM [Concomitant]
  21. METFORMIN [Concomitant]
  22. SYMBICORT [Concomitant]
  23. ALBUTEROL [Concomitant]
  24. REQUIP [Concomitant]
  25. VICODIN [Concomitant]
  26. FLEXERIL [Concomitant]
  27. AMRIX [Concomitant]
  28. JANUMET [Concomitant]
  29. LORATADINE [Concomitant]
  30. PRILOSEC [Concomitant]
  31. IZOFRAN /00955301/ [Concomitant]
  32. LOVENOX [Concomitant]
  33. TIZANIDINE [Concomitant]
  34. OXYCONTIN [Concomitant]
  35. OXYCODONE HCL [Concomitant]
  36. ASPIRIN [Concomitant]
  37. PERCOCET [Concomitant]

REACTIONS (10)
  - BLOOD GLUCOSE INCREASED [None]
  - ECONOMIC PROBLEM [None]
  - EMOTIONAL DISTRESS [None]
  - EXTRAPYRAMIDAL DISORDER [None]
  - GASTRITIS [None]
  - HYPERTRIGLYCERIDAEMIA [None]
  - INTERNATIONAL NORMALISED RATIO INCREASED [None]
  - RENAL FAILURE [None]
  - SLEEP APNOEA SYNDROME [None]
  - TARDIVE DYSKINESIA [None]
